FAERS Safety Report 14788612 (Version 1)
Quarter: 2018Q2

REPORT INFORMATION
  Report Type: Spontaneous
  Country: SE (occurrence: SE)
  Receive Date: 20180423
  Receipt Date: 20180423
  Transmission Date: 20180711
  Serious: Yes (Death, Other)
  Sender: FDA-Public Use
  Company Number: SE-AMGEN-SWESP2018053467

PATIENT
  Age: 76 Year
  Sex: Female

DRUGS (19)
  1. KYPROLIS [Suspect]
     Active Substance: CARFILZOMIB
     Dosage: 90 MG, UNK
     Route: 065
  2. OVESTERIN [Concomitant]
     Active Substance: ESTRIOL
     Dosage: UNK
  3. ZERLINDA [Concomitant]
     Active Substance: ZOLEDRONIC ACID
     Dosage: UNK
  4. KYPROLIS [Suspect]
     Active Substance: CARFILZOMIB
     Dosage: 30 MG, UNK
     Route: 065
  5. MOVICOL [Concomitant]
     Active Substance: POLYETHYLENE GLYCOL 3350\POTASSIUM CHLORIDE\SODIUM BICARBONATE\SODIUM CHLORIDE
     Dosage: UNK
  6. PREDNISOLON ALTERNOVA [Concomitant]
     Active Substance: PREDNISOLONE
     Dosage: UNK
  7. ACIKLOVIR STADA [Concomitant]
     Dosage: UNK
  8. OMEPRAZOL PENSA [Concomitant]
     Active Substance: OMEPRAZOLE MAGNESIUM
     Dosage: UNK
  9. FURIX [Concomitant]
     Active Substance: FUROSEMIDE
     Dosage: UNK
  10. PANODIL [Concomitant]
     Active Substance: ACETAMINOPHEN
     Dosage: UNK
  11. CILAXORAL [Concomitant]
     Active Substance: SODIUM PICOSULFATE
     Dosage: UNK
  12. WARAN [Concomitant]
     Active Substance: WARFARIN SODIUM
     Dosage: UNK
  13. KYPROLIS [Suspect]
     Active Substance: CARFILZOMIB
     Indication: PLASMA CELL MYELOMA
     Dosage: 40 MG, UNK
     Route: 065
  14. KYPROLIS [Suspect]
     Active Substance: CARFILZOMIB
     Dosage: 90 MG, UNK
     Route: 065
  15. BACTRIM [Concomitant]
     Active Substance: SULFAMETHOXAZOLE\TRIMETHOPRIM
     Dosage: UNK
  16. DIMETIKON MEDA [Concomitant]
     Dosage: UNK
  17. METOPROLOL TEVA [Concomitant]
     Active Substance: METOPROLOL
     Dosage: UNK
  18. EMGESAN [Concomitant]
     Dosage: UNK
  19. LOPERAMID MYLAN [Concomitant]
     Active Substance: LOPERAMIDE
     Dosage: UNK

REACTIONS (2)
  - Ventricular arrhythmia [Fatal]
  - Sudden cardiac death [Fatal]

NARRATIVE: CASE EVENT DATE: 2018
